FAERS Safety Report 4673446-4 (Version None)
Quarter: 2005Q2

REPORT INFORMATION
  Report Type: 
  Country: None (occurrence: None)
  Receive Date: 20050525
  Receipt Date: 20041203
  Transmission Date: 20051028
  Serious: Yes (Hospitalization)
  Sender: FDA-Public Use
  Company Number: GB-GLAXOSMITHKLINE-B0361393A

PATIENT
  Sex: Male

DRUGS (2)
  1. PAROXETINE HYDROCHLORIDE [Suspect]
     Indication: DEPRESSION
     Dosage: 30MG PER DAY
     Route: 065
     Dates: end: 19980101
  2. CHLORPROMAZINE [Concomitant]

REACTIONS (8)
  - ANOREXIA [None]
  - DEPRESSED MOOD [None]
  - ILL-DEFINED DISORDER [None]
  - MAJOR DEPRESSION [None]
  - RESTLESS LEGS SYNDROME [None]
  - SLEEP DISORDER [None]
  - THINKING ABNORMAL [None]
  - WEIGHT DECREASED [None]
